FAERS Safety Report 7354813-7 (Version None)
Quarter: 2011Q1

REPORT INFORMATION
  Report Type: 
  Country: None (occurrence: None)
  Receive Date: 20110311
  Receipt Date: 20110311
  Transmission Date: 20110831
  Serious: Yes (Other)
  Sender: FDA-Public Use
  Company Number: None

PATIENT
  Age: 65 Year
  Sex: Female
  Weight: 81.6475 kg

DRUGS (1)
  1. MEVACOR [Suspect]
     Dosage: 20 MG DAILY ORAL
     Route: 048
     Dates: start: 20050313, end: 20070909

REACTIONS (4)
  - DYSCALCULIA [None]
  - COORDINATION ABNORMAL [None]
  - VISUAL ACUITY REDUCED [None]
  - DEREALISATION [None]
